FAERS Safety Report 5974681-5 (Version None)
Quarter: 2008Q4

REPORT INFORMATION
  Report Type: 
  Country: None (occurrence: None)
  Receive Date: 20081201
  Receipt Date: 20080205
  Transmission Date: 20090506
  Serious: No
  Sender: FDA-Public Use
  Company Number: US-AMGEN-KDL262886

PATIENT
  Sex: Female

DRUGS (2)
  1. ENBREL [Suspect]
     Indication: RHEUMATOID ARTHRITIS
     Route: 058
     Dates: start: 20071001
  2. METHOTREXATE [Concomitant]
     Route: 048
     Dates: start: 20061101

REACTIONS (8)
  - EXCORIATION [None]
  - FURUNCLE [None]
  - GAIT DISTURBANCE [None]
  - LOCALISED INFECTION [None]
  - PAIN IN EXTREMITY [None]
  - PLEURISY [None]
  - RHEUMATOID ARTHRITIS [None]
  - VOMITING [None]
